FAERS Safety Report 14838977 (Version 2)
Quarter: 2018Q2

REPORT INFORMATION
  Report Type: Spontaneous
  Country: BG (occurrence: BG)
  Receive Date: 20180502
  Receipt Date: 20180621
  Transmission Date: 20180711
  Serious: Yes (Other)
  Sender: FDA-Public Use
  Company Number: BG-MYLANLABS-2018M1022149

PATIENT
  Age: 16 Year
  Sex: Female

DRUGS (4)
  1. PHENOBARBITAL SODIUM. [Suspect]
     Active Substance: PHENOBARBITAL SODIUM
     Indication: EPILEPSY
     Dosage: UNK
     Route: 030
  2. CARBAMAZEPINE. [Suspect]
     Active Substance: CARBAMAZEPINE
     Indication: EPILEPSY
     Dosage: 900 MG, UNK
  3. DIAZEPAM. [Suspect]
     Active Substance: DIAZEPAM
     Indication: EPILEPSY
     Dosage: UNK
     Route: 030
  4. DEPAKINE                           /00228501/ [Suspect]
     Active Substance: VALPROIC ACID
     Indication: EPILEPSY
     Dosage: UNK
     Route: 042

REACTIONS (8)
  - Somnolence [Recovering/Resolving]
  - Cerebral disorder [Unknown]
  - Ataxia [Unknown]
  - Altered state of consciousness [Unknown]
  - Hypotonia [Unknown]
  - Cerebellar syndrome [Recovering/Resolving]
  - Nystagmus [Unknown]
  - Walking disability [Unknown]
